FAERS Safety Report 5179684-9 (Version None)
Quarter: 2006Q4

REPORT INFORMATION
  Report Type: 
  Country: None (occurrence: None)
  Receive Date: 20061212
  Receipt Date: 20061205
  Transmission Date: 20070319
  Serious: Yes (Life-Threatening, Other)
  Sender: FDA-Public Use
  Company Number: 200612AGG00528

PATIENT
  Age: 80 Year
  Sex: Male

DRUGS (3)
  1. TIROFIBAN HCL INJ [Suspect]
     Indication: CORONARY ARTERY BYPASS
     Dosage: IV (ICH 042)
     Route: 042
     Dates: start: 20060406, end: 20060407
  2. CLOPIDOGREL BISULFATE [Suspect]
     Indication: CORONARY ARTERY BYPASS
     Dosage: 300 MG, 75 MG
     Dates: start: 20060406, end: 20060406
  3. HEPARIN [Concomitant]

REACTIONS (3)
  - PETECHIAE [None]
  - RENAL IMPAIRMENT [None]
  - THROMBOCYTOPENIA [None]
